FAERS Safety Report 5419889-2 (Version None)
Quarter: 2007Q3

REPORT INFORMATION
  Report Type: 
  Country: None (occurrence: None)
  Receive Date: 20070820
  Receipt Date: 20070809
  Transmission Date: 20080115
  Serious: Yes (Other)
  Sender: FDA-Public Use
  Company Number: US-PFIZER INC-2007067034

PATIENT
  Age: 50 Year
  Sex: Male
  Weight: 59.09 kg

DRUGS (3)
  1. CHANTIX [Suspect]
     Indication: SMOKING CESSATION THERAPY
  2. DIAMOX [Concomitant]
  3. ALL OTHER THERAPEUTIC PRODUCTS [Concomitant]

REACTIONS (11)
  - ABNORMAL DREAMS [None]
  - APATHY [None]
  - DECREASED APPETITE [None]
  - DISTURBANCE IN ATTENTION [None]
  - FLATULENCE [None]
  - INTRAOCULAR PRESSURE INCREASED [None]
  - IRRITABILITY [None]
  - NAUSEA [None]
  - POLLAKIURIA [None]
  - SLEEP DISORDER [None]
  - WEIGHT DECREASED [None]
